FAERS Safety Report 10006721 (Version 1)
Quarter: 2014Q1

REPORT INFORMATION
  Report Type: Spontaneous
  Country: US (occurrence: US)
  Receive Date: 20140313
  Receipt Date: 20140313
  Transmission Date: 20141002
  Serious: No
  Sender: FDA-Public Use
  Company Number: US-PFIZER INC-2014068925

PATIENT
  Sex: 0

DRUGS (6)
  1. ARTHROTEC [Suspect]
     Dosage: UNK
  2. VALTREX [Suspect]
     Dosage: UNK
  3. ALEVE [Suspect]
     Dosage: UNK
  4. DISALCID [Suspect]
     Dosage: UNK
  5. CYMBALTA [Suspect]
     Dosage: UNK
  6. MOTRIN [Suspect]
     Dosage: UNK

REACTIONS (1)
  - Drug hypersensitivity [Unknown]
